FAERS Safety Report 8891522 (Version 1)
Quarter: 2012Q4

REPORT INFORMATION
  Report Type: 
  Country: US (occurrence: US)
  Receive Date: 20121107
  Receipt Date: 20121107
  Transmission Date: 20130627
  Serious: No
  Sender: FDA-Public Use
  Company Number: US-AMGEN-USASP2011056024

PATIENT
  Age: 44 Year
  Weight: 102.4 kg

DRUGS (18)
  1. ENBREL [Suspect]
     Indication: PRODUCT USED FOR UNKNOWN INDICATION
     Dosage: 25 mg, 2 times/wk
  2. METHADONE [Concomitant]
     Dosage: 5 mg, UNK
     Route: 048
  3. PROVENTIL                          /00139501/ [Concomitant]
  4. LEFLUNOMIDE [Concomitant]
     Dosage: 10 mg, UNK
     Route: 048
  5. PROMETHAZINE [Concomitant]
     Dosage: 12.5 mg, UNK
     Route: 048
  6. THEOPHYLLINE [Concomitant]
     Dosage: 100 mg, tid
     Route: 048
  7. SYMBICORT [Concomitant]
  8. HYDROCHLOROTH [Concomitant]
     Dosage: 12.5 mg, UNK
     Route: 048
  9. VITAMIN C                          /00008001/ [Concomitant]
     Dosage: 100 mg, UNK
     Route: 048
  10. MULTIVITAMIN                       /00097801/ [Concomitant]
     Route: 048
  11. GARLIC                             /01570501/ [Concomitant]
     Dosage: 500 mg, UNK
     Route: 048
  12. ECHINACEA                          /01323501/ [Concomitant]
     Dosage: 80 mg, UNK
     Route: 048
  13. VITAMIN D [Concomitant]
     Dosage: 400 IU, UNK
     Route: 048
  14. TOPIRAMATE [Concomitant]
     Dosage: 25 mg, UNK
     Route: 048
  15. MORPHINE SULPHATE [Concomitant]
     Dosage: 10 mg, UNK
     Route: 048
  16. FERROUS SULFATE [Concomitant]
     Dosage: UNK
     Route: 048
  17. LAXATIVE [Concomitant]
     Route: 048
  18. PLAQUENIL                          /00072603/ [Concomitant]
     Dosage: 200 mg, UNK
     Route: 048

REACTIONS (2)
  - Hypoaesthesia [Unknown]
  - Paraesthesia [Unknown]
